FAERS Safety Report 14176917 (Version 1)
Quarter: 2017Q4

REPORT INFORMATION
  Report Type: Spontaneous
  Country: NO (occurrence: NO)
  Receive Date: 20171110
  Receipt Date: 20171110
  Transmission Date: 20180321
  Serious: Yes (Hospitalization, Other)
  Sender: FDA-Public Use
  Company Number: NO-APOTEX-2017AP021369

PATIENT
  Sex: Female

DRUGS (2)
  1. ATORVASTATIN ORIFARM FILMDRASJERTE (FILM-COATED TABLET) [Suspect]
     Active Substance: ATORVASTATIN CALCIUM
     Indication: LOW DENSITY LIPOPROTEIN INCREASED
     Dosage: 40 MG, QD
     Route: 065
  2. ATORVASTATIN ORIFARM FILMDRASJERTE (FILM-COATED TABLET) [Suspect]
     Active Substance: ATORVASTATIN CALCIUM
     Dosage: 20 MG, QD
     Route: 065

REACTIONS (7)
  - Blood alkaline phosphatase increased [None]
  - Hepatotoxicity [Recovered/Resolved]
  - Alanine aminotransferase increased [None]
  - Type 2 diabetes mellitus [None]
  - Gamma-glutamyltransferase increased [None]
  - Blood bilirubin increased [None]
  - Aspartate aminotransferase increased [None]
